FAERS Safety Report 4597095-1 (Version None)
Quarter: 2005Q1

REPORT INFORMATION
  Report Type: 
  Country: None (occurrence: None)
  Receive Date: 20050302
  Receipt Date: 20050221
  Transmission Date: 20050727
  Serious: Yes (Hospitalization)
  Sender: FDA-Public Use
  Company Number: SE-MERCK-0502SWE00027

PATIENT
  Age: 46 Year
  Sex: Male

DRUGS (3)
  1. VIOXX [Suspect]
     Indication: MYALGIA
     Route: 048
     Dates: start: 20040525, end: 20040604
  2. MIRTAZAPINE [Concomitant]
     Route: 065
  3. BUDESONIDE [Concomitant]
     Route: 065

REACTIONS (2)
  - ANGIOPATHY [None]
  - CEREBRAL INFARCTION [None]
